FAERS Safety Report 10255933 (Version 2)
Quarter: 2014Q4

REPORT INFORMATION
  Report Type: Spontaneous
  Country: US (occurrence: US)
  Receive Date: 20140624
  Receipt Date: 20141203
  Transmission Date: 20150528
  Serious: Yes (Death, Other)
  Sender: FDA-Public Use
  Company Number: US-GLAXOSMITHKLINE-A1077872A

PATIENT
  Sex: Male

DRUGS (1)
  1. VOTRIENT [Suspect]
     Active Substance: PAZOPANIB HYDROCHLORIDE
     Indication: SOFT TISSUE SARCOMA
     Dosage: 200MG  AT 800MG DAILY
     Route: 048
     Dates: start: 20140228, end: 20140520

REACTIONS (1)
  - Death [Fatal]
